FAERS Safety Report 19598386 (Version 4)
Quarter: 2022Q3

REPORT INFORMATION
  Report Type: Report from Study
  Country: CH (occurrence: CH)
  Receive Date: 20210723
  Receipt Date: 20220810
  Transmission Date: 20221027
  Serious: Yes (Hospitalization, Other)
  Sender: FDA-Public Use
  Company Number: CH-ABBVIE-21K-151-3826004-00

PATIENT
  Age: 65 Year
  Sex: Male

DRUGS (5)
  1. CARBIDOPA\LEVODOPA [Suspect]
     Active Substance: CARBIDOPA\LEVODOPA
     Indication: Parkinson^s disease
     Dosage: MD: 10 ML, CRD: 2.7 ML/H, CRN: 0 ML/H, ED: 2.5 ML?16H THERAPY
     Route: 050
     Dates: start: 20190606
  2. CARBIDOPA\LEVODOPA [Suspect]
     Active Substance: CARBIDOPA\LEVODOPA
     Dosage: FREQUENCY TEXT - 16H THERAPY
     Route: 050
     Dates: end: 20210715
  3. CARBIDOPA\LEVODOPA [Suspect]
     Active Substance: CARBIDOPA\LEVODOPA
     Dosage: FREQUENCY TEXT- 16H THERAPY?MD: 5 ML, CRD: 1.3 ML/H, ED: 2.5 ML
     Route: 050
     Dates: start: 20210715
  4. CARBIDOPA\LEVODOPA [Suspect]
     Active Substance: CARBIDOPA\LEVODOPA
     Dosage: FREQUENCY: 16 H THERAPY?MD: 5 ML, CRD: 1.7 ML/H, ED: 2.5 ML
     Route: 050
     Dates: start: 20220804, end: 20220804
  5. CARBIDOPA\LEVODOPA [Suspect]
     Active Substance: CARBIDOPA\LEVODOPA
     Dosage: FREQUENCY: 16 H THERAPY?MD: 5 ML, CRD: 1.7 ML/H, ED: 2.5 ML
     Route: 050
     Dates: start: 20220804

REACTIONS (11)
  - Unintentional medical device removal [Recovered/Resolved]
  - Pancreaticoduodenectomy [Unknown]
  - Stress [Unknown]
  - Parkinsonian gait [Not Recovered/Not Resolved]
  - Memory impairment [Unknown]
  - Fatigue [Not Recovered/Not Resolved]
  - Dementia [Not Recovered/Not Resolved]
  - Akinesia [Not Recovered/Not Resolved]
  - Dyskinesia [Unknown]
  - Disorientation [Not Recovered/Not Resolved]
  - Therapeutic product effect decreased [Unknown]

NARRATIVE: CASE EVENT DATE: 20210317
